FAERS Safety Report 9451558 (Version 1)
Quarter: 2013Q3

REPORT INFORMATION
  Report Type: Spontaneous
  Country: US (occurrence: US)
  Receive Date: 20130811
  Receipt Date: 20130811
  Transmission Date: 20140515
  Serious: Yes (Hospitalization)
  Sender: FDA-Public Use
  Company Number: US-SANOFI-AVENTIS-2013SA045252

PATIENT
  Age: 58 Year
  Sex: Male
  Weight: 131.54 kg

DRUGS (9)
  1. PLAVIX [Suspect]
     Indication: TRANSIENT ISCHAEMIC ATTACK
     Route: 048
     Dates: start: 20130412
  2. CLOPIDOGREL [Suspect]
     Route: 065
  3. REQUIP [Concomitant]
     Indication: RESTLESS LEGS SYNDROME
  4. METFORMIN [Concomitant]
  5. ATENOLOL [Concomitant]
  6. HYDROCHLOROTHIAZIDE [Concomitant]
  7. AMITRIPTYLINE [Concomitant]
  8. LOSARTAN [Concomitant]
  9. LOVASTATIN [Concomitant]

REACTIONS (6)
  - Osteomyelitis [Recovering/Resolving]
  - Chills [Recovered/Resolved]
  - Localised infection [Recovering/Resolving]
  - Pyrexia [Recovered/Resolved]
  - Amnesia [Recovered/Resolved]
  - Disorientation [Recovered/Resolved]
